FAERS Safety Report 5090428-1 (Version None)
Quarter: 2006Q3

REPORT INFORMATION
  Report Type: 
  Country: None (occurrence: None)
  Receive Date: 20060828
  Receipt Date: 20060502
  Transmission Date: 20061208
  Serious: Yes (Other)
  Sender: FDA-Public Use
  Company Number: US-GLAXOSMITHKLINE-A0604099A

PATIENT
  Age: 52 Year
  Sex: Female

DRUGS (5)
  1. WELLBUTRIN [Suspect]
     Indication: DRUG USE FOR UNKNOWN INDICATION
     Dosage: 150MG PER DAY
     Route: 048
     Dates: start: 20050101, end: 20060401
  2. CYMBALTA [Concomitant]
  3. VICODIN [Concomitant]
  4. SOMA [Concomitant]
  5. PHENERGAN HCL [Concomitant]

REACTIONS (1)
  - CONVULSION [None]
